FAERS Safety Report 5162874-9 (Version None)
Quarter: 2006Q4

REPORT INFORMATION
  Report Type: 
  Country: None (occurrence: None)
  Receive Date: 20061201
  Receipt Date: 20061127
  Transmission Date: 20070319
  Serious: Yes (Hospitalization, Other)
  Sender: FDA-Public Use
  Company Number: PL-GLAXOSMITHKLINE-B0448765A

PATIENT
  Age: 5 Year
  Sex: Female

DRUGS (1)
  1. AUGMENTIN '125' [Suspect]
     Indication: DRUG USE FOR UNKNOWN INDICATION
     Dosage: 4ML TWICE PER DAY
     Route: 065
     Dates: start: 20061122, end: 20061123

REACTIONS (2)
  - EYELID OEDEMA [None]
  - PURPURA [None]
